FAERS Safety Report 6131584-3 (Version None)
Quarter: 2009Q1

REPORT INFORMATION
  Report Type: 
  Country: None (occurrence: None)
  Receive Date: 20090325
  Receipt Date: 20081110
  Transmission Date: 20090719
  Serious: Yes (Other)
  Sender: FDA-Public Use
  Company Number: US-BRISTOL-MYERS SQUIBB COMPANY-14397780

PATIENT
  Age: 67 Year
  Sex: Male
  Weight: 100 kg

DRUGS (15)
  1. ERBITUX [Suspect]
     Indication: LARYNGEAL CANCER
     Dosage: DOSE VALUE 200MG,100CC.INTERRUPTED AND RESTARTED. 890 MG ORDERED, 200 MG ON DAY1, 490MG DAY 2.
     Route: 042
     Dates: start: 20081106
  2. MORPHINE [Concomitant]
  3. CYCLOBENZAPRINE [Concomitant]
  4. NEURONTIN [Concomitant]
  5. DEXAMETHASONE TAB [Concomitant]
  6. ASPIRIN [Concomitant]
  7. LISINOPRIL [Concomitant]
  8. FOLIC ACID [Concomitant]
  9. LIPITOR [Concomitant]
  10. MULTI-VITAMIN [Concomitant]
  11. ZANTAC [Concomitant]
     Indication: PREMEDICATION
     Route: 042
  12. BENADRYL [Concomitant]
     Indication: PREMEDICATION
     Route: 042
  13. DECADRON [Concomitant]
     Indication: PREMEDICATION
     Dosage: TAKEN LAST NIGHT AND AM.
     Route: 048
  14. DECADRON [Concomitant]
     Dosage: ADMINISTERED 30 MINS PRIOR TO ERBITUX.
     Route: 042
  15. ALBUTEROL [Concomitant]
     Route: 055

REACTIONS (8)
  - HYPOTENSION [None]
  - JOINT SWELLING [None]
  - MUSCLE SWELLING [None]
  - NASAL CONGESTION [None]
  - PARAESTHESIA [None]
  - PRODUCTIVE COUGH [None]
  - RASH [None]
  - URTICARIA [None]
